FAERS Safety Report 15057365 (Version 3)
Quarter: 2018Q4

REPORT INFORMATION
  Report Type: Report from Study
  Country: None (occurrence: US)
  Receive Date: 20180625
  Receipt Date: 20181003
  Transmission Date: 20190204
  Serious: Yes (Other)
  Sender: FDA-Public Use
  Company Number: US-ABBVIE-17K-163-2125928-00

PATIENT
  Age: 59 Year
  Sex: Female

DRUGS (1)
  1. HUMIRA [Suspect]
     Active Substance: ADALIMUMAB
     Indication: RHEUMATOID ARTHRITIS
     Route: 058

REACTIONS (21)
  - Blood test abnormal [Unknown]
  - Sensitivity to weather change [Unknown]
  - Foot deformity [Unknown]
  - Accident at work [Unknown]
  - Contusion [Unknown]
  - Rheumatoid arthritis [Unknown]
  - Balance disorder [Unknown]
  - Gait disturbance [Unknown]
  - Hypoaesthesia [Not Recovered/Not Resolved]
  - Discomfort [Unknown]
  - Gastroenteritis viral [Recovered/Resolved]
  - Nerve compression [Unknown]
  - Gastroenteritis viral [Recovered/Resolved]
  - Dysstasia [Not Recovered/Not Resolved]
  - Hypophagia [Unknown]
  - Asthenia [Unknown]
  - Intervertebral disc protrusion [Unknown]
  - Chills [Unknown]
  - Mobility decreased [Not Recovered/Not Resolved]
  - Fall [Unknown]
  - Hyperhidrosis [Unknown]

NARRATIVE: CASE EVENT DATE: 2018
